FAERS Safety Report 19645591 (Version 1)
Quarter: 2021Q3

REPORT INFORMATION
  Report Type: Spontaneous
  Country: US (occurrence: US)
  Receive Date: 20210731
  Receipt Date: 20210731
  Transmission Date: 20211014
  Serious: Yes (Life-Threatening, Hospitalization, Disabling, Other)
  Sender: FDA-Public Use
  Company Number: None

PATIENT

DRUGS (1)
  1. XARELTO [Suspect]
     Active Substance: RIVAROXABAN
     Indication: ANTICOAGULANT THERAPY
     Dosage: ?          QUANTITY:1 TABLET(S);?
     Route: 048
     Dates: start: 20170316, end: 20200802

REACTIONS (4)
  - Disease complication [None]
  - Haemorrhagic stroke [None]
  - Anticoagulation drug level above therapeutic [None]
  - Cerebellar haemorrhage [None]

NARRATIVE: CASE EVENT DATE: 20200802
